FAERS Safety Report 8995816 (Version 5)
Quarter: 2013Q3

REPORT INFORMATION
  Report Type: Spontaneous
  Country: JP (occurrence: JP)
  Receive Date: 20130103
  Receipt Date: 20130717
  Transmission Date: 20140515
  Serious: Yes (Hospitalization)
  Sender: FDA-Public Use
  Company Number: PHHY2012JP121198

PATIENT
  Age: 87 Year
  Sex: Male

DRUGS (3)
  1. EXELON PATCH [Suspect]
     Indication: DEMENTIA ALZHEIMER^S TYPE
     Dosage: 4.5 MG, DAILY
     Route: 062
  2. EXELON PATCH [Suspect]
     Dosage: 13.5 MG, DAILY
     Route: 062
  3. EXELON PATCH [Suspect]
     Dosage: 94.5 MG (SEVEN EXELON 13.5MG PATCHES)
     Route: 062
     Dates: end: 20121205

REACTIONS (6)
  - Altered state of consciousness [Recovered/Resolved]
  - Joint ankylosis [Recovered/Resolved]
  - Screaming [Recovered/Resolved]
  - Abnormal behaviour [Unknown]
  - Drug administration error [Unknown]
  - Accidental overdose [Unknown]
